FAERS Safety Report 12225164 (Version 7)
Quarter: 2016Q2

REPORT INFORMATION
  Report Type: Spontaneous
  Country: IT (occurrence: IT)
  Receive Date: 20160331
  Receipt Date: 20160609
  Transmission Date: 20160815
  Serious: Yes (Hospitalization)
  Sender: FDA-Public Use
  Company Number: IT-SA-2016SA059690

PATIENT
  Age: 7 Month
  Sex: Male

DRUGS (5)
  1. MYOZYME [Suspect]
     Active Substance: ALGLUCOSIDASE ALFA
     Indication: GLYCOGEN STORAGE DISEASE TYPE II
     Route: 041
  2. MYOZYME [Suspect]
     Active Substance: ALGLUCOSIDASE ALFA
     Indication: GLYCOGEN STORAGE DISEASE TYPE II
     Route: 041
  3. SULBACTAM/AMPICILLIN [Concomitant]
     Dates: start: 20160304, end: 20160322
  4. MYOZYME [Suspect]
     Active Substance: ALGLUCOSIDASE ALFA
     Indication: GLYCOGEN STORAGE DISEASE TYPE II
     Route: 041
     Dates: start: 20160107
  5. RANITIDINE. [Concomitant]
     Active Substance: RANITIDINE
     Dates: start: 20160304, end: 20160322

REACTIONS (5)
  - Pneumonia [Recovered/Resolved]
  - Cardiac failure [Unknown]
  - Off label use [Unknown]
  - Hypotonia [Unknown]
  - Respiratory failure [Unknown]

NARRATIVE: CASE EVENT DATE: 20160304
